FAERS Safety Report 5824097-7 (Version None)
Quarter: 2008Q3

REPORT INFORMATION
  Report Type: 
  Country: None (occurrence: None)
  Receive Date: 20080722
  Receipt Date: 20080707
  Transmission Date: 20090109
  Serious: Yes (Hospitalization)
  Sender: FDA-Public Use
  Company Number: 2008BI017626

PATIENT
  Age: 52 Year
  Sex: Male

DRUGS (9)
  1. ZEVALIN [Suspect]
     Indication: BONE MARROW CONDITIONING REGIMEN
     Dosage: ; 1X; IV
     Route: 042
     Dates: start: 20080327, end: 20080327
  2. ZEVALIN [Suspect]
     Indication: NON-HODGKIN'S LYMPHOMA STAGE IV
     Dosage: ; 1X; IV
     Route: 042
     Dates: start: 20080327, end: 20080327
  3. RITUXIMAB [Concomitant]
  4. CARMUSTINE [Concomitant]
  5. ARACYTINE [Concomitant]
  6. ETOPOSIDE [Concomitant]
  7. MELPHALAN [Concomitant]
  8. TRIFLUCAN [Concomitant]
  9. ZELITREX [Concomitant]

REACTIONS (8)
  - APLASIA [None]
  - CULTURE STOOL POSITIVE [None]
  - DIARRHOEA INFECTIOUS [None]
  - ENTEROCOCCAL INFECTION [None]
  - MALAISE [None]
  - PATHOGEN RESISTANCE [None]
  - PSEUDOMONAS INFECTION [None]
  - WEIGHT DECREASED [None]
